FAERS Safety Report 7130365-1 (Version None)
Quarter: 2010Q4

REPORT INFORMATION
  Report Type: 
  Country: None (occurrence: None)
  Receive Date: 20101116
  Receipt Date: 20101104
  Transmission Date: 20110411
  Serious: Yes (Disabling)
  Sender: FDA-Public Use
  Company Number: GB-ACCORD-006657

PATIENT
  Age: 83 Year
  Sex: Male
  Weight: 45 kg

DRUGS (4)
  1. SIMVASTATIN [Suspect]
     Indication: HYPERCHOLESTEROLAEMIA
     Dosage: 20.00-MG /ORAL
     Route: 048
     Dates: start: 20050101, end: 20101011
  2. AMLODIPINE [Concomitant]
  3. CO-DYDRAMOL(CO-DYDRAMOL) [Concomitant]
  4. FUROSEMIDE [Concomitant]

REACTIONS (3)
  - CARDIAC FAILURE CONGESTIVE [None]
  - HYPERTENSION [None]
  - PAIN [None]
